FAERS Safety Report 8170407-8 (Version None)
Quarter: 2012Q1

REPORT INFORMATION
  Report Type: 
  Country: None (occurrence: None)
  Receive Date: 20120228
  Receipt Date: 20120214
  Transmission Date: 20120608
  Serious: No
  Sender: FDA-Public Use
  Company Number: US-ELI_LILLY_AND_COMPANY-US201202004661

PATIENT
  Age: 77 Year
  Sex: Female

DRUGS (1)
  1. CYMBALTA [Suspect]
     Indication: ANXIETY
     Dosage: 30 MG, QOD
     Dates: start: 20110204

REACTIONS (8)
  - TREMOR [None]
  - OCULAR ICTERUS [None]
  - SUBCUTANEOUS HAEMATOMA [None]
  - POOR QUALITY SLEEP [None]
  - SLEEP TALKING [None]
  - INTENTIONAL DRUG MISUSE [None]
  - OCULAR HYPERAEMIA [None]
  - NAUSEA [None]
